FAERS Safety Report 5305473-8 (Version None)
Quarter: 2007Q2

REPORT INFORMATION
  Report Type: 
  Country: None (occurrence: None)
  Receive Date: 20070424
  Receipt Date: 20060412
  Transmission Date: 20071010
  Serious: No
  Sender: FDA-Public Use
  Company Number: US-GLAXOSMITHKLINE-A0601560A

PATIENT
  Age: 71 Year
  Sex: Female

DRUGS (2)
  1. SEREVENT [Suspect]
     Indication: BRONCHOSPASM
     Dosage: 1MG PER DAY
     Route: 055
     Dates: start: 20050101
  2. CHLORPHENIRAMINE MALEATE [Concomitant]

REACTIONS (3)
  - CHEST DISCOMFORT [None]
  - COUGH [None]
  - THROAT IRRITATION [None]
